FAERS Safety Report 22173933 (Version 2)
Quarter: 2023Q2

REPORT INFORMATION
  Report Type: Report from Study
  Country: US (occurrence: US)
  Receive Date: 20230404
  Receipt Date: 20230411
  Transmission Date: 20230721
  Serious: Yes (Hospitalization)
  Sender: FDA-Public Use
  Company Number: US-ABBVIE-4715464

PATIENT
  Sex: Male

DRUGS (3)
  1. IMBRUVICA [Suspect]
     Active Substance: IBRUTINIB
     Indication: Hairy cell leukaemia
     Dosage: FORM STRENGTH: 140 MG?LAST ADMIN DATE WAS MAR 2023?140 MG THREE TIMES PER DAY
     Route: 048
     Dates: start: 20230311
  2. IMBRUVICA [Suspect]
     Active Substance: IBRUTINIB
     Indication: Hairy cell leukaemia
     Dosage: FORM STRENGTH: 140MG?FIRST ADMIN DATE WAS MAR 2023?140 MG THREE TIMES PER DAY
     Route: 048
  3. METHOTREXATE [Concomitant]
     Active Substance: METHOTREXATE
     Indication: Product used for unknown indication

REACTIONS (4)
  - Hospitalisation [Unknown]
  - SARS-CoV-2 test positive [Unknown]
  - Blood potassium decreased [Unknown]
  - Depression [Unknown]
